FAERS Safety Report 19974512 (Version 6)
Quarter: 2023Q2

REPORT INFORMATION
  Report Type: Spontaneous
  Country: IN (occurrence: IN)
  Receive Date: 20211020
  Receipt Date: 20230525
  Transmission Date: 20230722
  Serious: Yes (Other)
  Sender: FDA-Public Use
  Company Number: IN-PFIZER INC-2020481399

PATIENT
  Age: 65 Year
  Sex: Female

DRUGS (4)
  1. PALBOCICLIB [Suspect]
     Active Substance: PALBOCICLIB
     Indication: Breast cancer metastatic
     Dosage: 125 MG, 1X/DAY (OD)
     Route: 048
     Dates: start: 20191212
  2. PALBOCICLIB [Suspect]
     Active Substance: PALBOCICLIB
     Dosage: 100 MG, CYCLIC (DAILY FOR 3 WEEKS AND 1 WEEK OFF)
     Route: 048
  3. FEMARA [Suspect]
     Active Substance: LETROZOLE
     Dosage: 2.5 MG, 1X/DAY
     Route: 048
  4. CALCIUM\VITAMIN D [Suspect]
     Active Substance: CALCIUM\VITAMIN D
     Dosage: UNK

REACTIONS (29)
  - Neutropenia [Unknown]
  - Neutrophil count decreased [Unknown]
  - COVID-19 [Unknown]
  - Neuropathy peripheral [Unknown]
  - Hepatic cirrhosis [Unknown]
  - Asthma [Unknown]
  - Gastrooesophageal reflux disease [Unknown]
  - Glycosylated haemoglobin abnormal [Unknown]
  - Blood uric acid abnormal [Unknown]
  - Low density lipoprotein abnormal [Unknown]
  - Pyrexia [Unknown]
  - Chills [Unknown]
  - Cough [Unknown]
  - Myalgia [Unknown]
  - Renal pain [Unknown]
  - Haemoglobin decreased [Unknown]
  - Haematocrit decreased [Unknown]
  - White blood cell count decreased [Unknown]
  - Platelet count abnormal [Unknown]
  - Red blood cell count decreased [Unknown]
  - Red cell distribution width decreased [Unknown]
  - Lymphocyte percentage increased [Unknown]
  - Lymphocyte count decreased [Unknown]
  - Monocyte count decreased [Unknown]
  - Basophil count decreased [Unknown]
  - Blood sodium decreased [Unknown]
  - Fatigue [Unknown]
  - Asthenia [Unknown]
  - Productive cough [Unknown]

NARRATIVE: CASE EVENT DATE: 20201208
